FAERS Safety Report 10011455 (Version 1)
Quarter: 2014Q1

REPORT INFORMATION
  Report Type: Spontaneous
  Country: US (occurrence: None)
  Receive Date: 20140304
  Receipt Date: 20140304
  Transmission Date: 20141002
  Serious: Yes (Other)
  Sender: FDA-Public Use
  Company Number: RB-57087-2013

PATIENT
  Age: 25 Year
  Sex: Female

DRUGS (2)
  1. BUPRENORPHINE W/NALOXONE [Suspect]
     Indication: DRUG DEPENDENCE
     Route: 060
     Dates: start: 20130606, end: 2013
  2. CLONIDINE [Concomitant]

REACTIONS (27)
  - Convulsion [None]
  - Nervousness [None]
  - Constipation [None]
  - Breast disorder [None]
  - Drug withdrawal syndrome [None]
  - Pain [None]
  - Arthralgia [None]
  - Bone pain [None]
  - Dizziness [None]
  - Nausea [None]
  - Vomiting [None]
  - Dry mouth [None]
  - Swollen tongue [None]
  - Mood swings [None]
  - Urinary incontinence [None]
  - Memory impairment [None]
  - Vision blurred [None]
  - Weight decreased [None]
  - Gait disturbance [None]
  - Balance disorder [None]
  - Insomnia [None]
  - Decreased appetite [None]
  - Restlessness [None]
  - Fall [None]
  - Muscle spasms [None]
  - Road traffic accident [None]
  - Underdose [None]
